FAERS Safety Report 7668599-X (Version None)
Quarter: 2011Q3

REPORT INFORMATION
  Report Type: 
  Country: None (occurrence: None)
  Receive Date: 20110808
  Receipt Date: 20110808
  Transmission Date: 20111222
  Serious: Yes (Disabling, Other)
  Sender: FDA-Public Use
  Company Number: None

PATIENT
  Age: 35 Year
  Sex: Female
  Weight: 99.79 kg

DRUGS (1)
  1. LATUDA [Suspect]
     Indication: MANIA
     Dosage: 1 TABLET
     Route: 048
     Dates: start: 20110621, end: 20110630

REACTIONS (5)
  - TREMOR [None]
  - CONVULSION [None]
  - TARDIVE DYSKINESIA [None]
  - HALLUCINATION [None]
  - APHASIA [None]
